FAERS Safety Report 5400529-3 (Version None)
Quarter: 2007Q3

REPORT INFORMATION
  Report Type: 
  Country: None (occurrence: None)
  Receive Date: 20070730
  Receipt Date: 20070605
  Transmission Date: 20080115
  Serious: Yes (Disabling, Other)
  Sender: FDA-Public Use
  Company Number: US-PURDUE-USA_2007_0028391

PATIENT
  Sex: Male

DRUGS (1)
  1. OXYCONTIN [Suspect]
     Indication: PAIN
     Dates: start: 20010205, end: 20021021

REACTIONS (4)
  - CEREBROVASCULAR ACCIDENT [None]
  - DYSGRAPHIA [None]
  - HEMIPARESIS [None]
  - SPEECH DISORDER [None]
